FAERS Safety Report 18954785 (Version 2)
Quarter: 2021Q1

REPORT INFORMATION
  Report Type: Spontaneous
  Country: UA (occurrence: UA)
  Receive Date: 20210301
  Receipt Date: 20210315
  Transmission Date: 20210420
  Serious: Yes (Other)
  Sender: FDA-Public Use
  Company Number: UA-ROCHE-2773298

PATIENT
  Age: 76 Year
  Sex: Male

DRUGS (2)
  1. GAZYVA [Suspect]
     Active Substance: OBINUTUZUMAB
     Indication: CHRONIC LYMPHOCYTIC LEUKAEMIA
     Dosage: INFUSION 1000MG/40ML HO147B07
     Route: 041
     Dates: start: 20210209
  2. GAZYVA [Suspect]
     Active Substance: OBINUTUZUMAB
     Dosage: INFUSION 1000MG/40ML
     Route: 041
     Dates: start: 20210209

REACTIONS (3)
  - Thrombocytopenia [Recovered/Resolved]
  - Body temperature increased [Unknown]
  - Renal failure [Unknown]

NARRATIVE: CASE EVENT DATE: 20210209
